FAERS Safety Report 8106118-4 (Version None)
Quarter: 2012Q1

REPORT INFORMATION
  Report Type: 
  Country: None (occurrence: None)
  Receive Date: 20120202
  Receipt Date: 20120127
  Transmission Date: 20120608
  Serious: No
  Sender: FDA-Public Use
  Company Number: US-PFIZER INC-2012023418

PATIENT
  Sex: Male
  Weight: 97.506 kg

DRUGS (5)
  1. ANDROGEL [Interacting]
     Indication: BLOOD TESTOSTERONE DECREASED
     Dosage: 5 G, DAILY
     Route: 061
  2. VITAMIN TAB [Concomitant]
     Dosage: UNK
  3. VIAGRA [Suspect]
     Indication: ERECTILE DYSFUNCTION
     Dosage: 100 MG, AS NEEDED
     Route: 048
  4. ANDROGEL [Interacting]
     Indication: ROUTINE HEALTH MAINTENANCE
  5. MINERALS NOS [Concomitant]
     Dosage: UNK

REACTIONS (7)
  - DRUG INTERACTION [None]
  - PSYCHIATRIC SYMPTOM [None]
  - ANXIETY [None]
  - DRUG INEFFECTIVE [None]
  - SINUS CONGESTION [None]
  - LIBIDO DECREASED [None]
  - ERECTILE DYSFUNCTION [None]
